FAERS Safety Report 7520093-2 (Version None)
Quarter: 2011Q2

REPORT INFORMATION
  Report Type: 
  Country: None (occurrence: None)
  Receive Date: 20110602
  Receipt Date: 20110527
  Transmission Date: 20111010
  Serious: Yes (Other)
  Sender: FDA-Public Use
  Company Number: US-ROXANE LABORATORIES, INC.-2011-RO-00743RO

PATIENT
  Sex: Female

DRUGS (3)
  1. REBIF [Suspect]
     Indication: MULTIPLE SCLEROSIS
     Route: 058
     Dates: start: 20040713
  2. ZANAFLEX [Concomitant]
  3. PREDNISONE [Suspect]
     Indication: MULTIPLE SCLEROSIS
     Route: 048

REACTIONS (4)
  - BLOOD GLUCOSE INCREASED [None]
  - MUSCLE SPASMS [None]
  - UNEVALUABLE EVENT [None]
  - LOSS OF CONSCIOUSNESS [None]
